FAERS Safety Report 6191405-X (Version None)
Quarter: 2009Q2

REPORT INFORMATION
  Report Type: 
  Country: None (occurrence: None)
  Receive Date: 20090515
  Receipt Date: 20090505
  Transmission Date: 20091009
  Serious: Yes (Other)
  Sender: FDA-Public Use
  Company Number: US-TEVA-193875USA

PATIENT
  Sex: Female

DRUGS (1)
  1. KARIVA TABLET [Suspect]
     Route: 048
     Dates: start: 20050101

REACTIONS (2)
  - BLOOD POTASSIUM INCREASED [None]
  - MIGRAINE [None]
